FAERS Safety Report 8467870-1 (Version None)
Quarter: 2012Q2

REPORT INFORMATION
  Report Type: 
  Country: None (occurrence: None)
  Receive Date: 20120626
  Receipt Date: 20120618
  Transmission Date: 20120825
  Serious: Yes (Other)
  Sender: FDA-Public Use
  Company Number: CA-ROCHE-1067328

PATIENT
  Sex: Female

DRUGS (12)
  1. MULTI-VITAMINS [Concomitant]
  2. COQ-10 [Concomitant]
  3. MINOCYCLINE HCL [Concomitant]
     Dates: start: 20120428
  4. VITAMIN D [Concomitant]
  5. SHARK LIVER OIL [Concomitant]
  6. VEMURAFENIB [Suspect]
     Dosage: DOSE REDUCED.
     Route: 048
     Dates: start: 20120501
  7. BENADRYL [Concomitant]
     Dates: start: 20120428
  8. ATIVAN [Concomitant]
     Indication: SLEEP DISORDER
  9. CORAL CALCIUM [Concomitant]
  10. HYDROCORTISONE ACETATE [Concomitant]
     Dates: start: 20120428
  11. VEMURAFENIB [Suspect]
     Indication: METASTATIC MALIGNANT MELANOMA
     Route: 048
     Dates: start: 20120419
  12. POTASSIUM ACETATE [Concomitant]

REACTIONS (9)
  - PAIN IN EXTREMITY [None]
  - PRURITUS [None]
  - PYREXIA [None]
  - SQUAMOUS CELL CARCINOMA [None]
  - MYALGIA [None]
  - ARTHRALGIA [None]
  - URTICARIA [None]
  - ERYTHEMA [None]
  - MEMORY IMPAIRMENT [None]
